FAERS Safety Report 4313575-8 (Version None)
Quarter: 2004Q1

REPORT INFORMATION
  Report Type: 
  Country: None (occurrence: None)
  Receive Date: 20040305
  Receipt Date: 20040224
  Transmission Date: 20041129
  Serious: Yes (Hospitalization)
  Sender: FDA-Public Use
  Company Number: US-JNJFOC-20040205902

PATIENT
  Age: 70 Year
  Sex: Female

DRUGS (16)
  1. INFLIXIMAB (INFLIXIMAB, RECOMBINANT) LYOPHILIZED POWDER [Suspect]
     Indication: RHEUMATOID ARTHRITIS
     Dosage: INTRAVENOUS
     Route: 042
  2. METHOTREXATE (METHOTERXATE) [Concomitant]
  3. PREDNISONE [Concomitant]
  4. DARVOCET (PROPACET) [Concomitant]
  5. XANAX [Concomitant]
  6. PAXIL [Concomitant]
  7. PREVACID [Concomitant]
  8. SYNTHROID [Concomitant]
  9. IMDUR [Concomitant]
  10. ALLEGRA [Concomitant]
  11. POTASSIUM (POTASSIUM) [Concomitant]
  12. ESTROGEN (ESTROGEN NOS) [Concomitant]
  13. FOLIC ACID [Concomitant]
  14. AZMACORT [Concomitant]
  15. NASONEX [Concomitant]
  16. CALCIUM + D (CALCIUM) [Concomitant]

REACTIONS (2)
  - DIVERTICULUM [None]
  - INTESTINAL OBSTRUCTION [None]
